FAERS Safety Report 20962345 (Version 1)
Quarter: 2022Q2

REPORT INFORMATION
  Report Type: Spontaneous
  Country: US (occurrence: None)
  Receive Date: 20220615
  Receipt Date: 20220615
  Transmission Date: 20220721
  Serious: Yes (Other)
  Sender: FDA-Public Use
  Company Number: None

PATIENT
  Age: 44 Year
  Sex: Female
  Weight: 60.75 kg

DRUGS (16)
  1. PAXLOVID [Suspect]
     Active Substance: NIRMATRELVIR\RITONAVIR
     Indication: COVID-19
     Dates: start: 20220607, end: 20220611
  2. ZOLADEX [Concomitant]
     Active Substance: GOSERELIN ACETATE
  3. ARIMIDEX [Concomitant]
     Active Substance: ANASTROZOLE
  4. EFFEXOR [Concomitant]
     Active Substance: VENLAFAXINE HYDROCHLORIDE
  5. VALTREX [Concomitant]
     Active Substance: VALACYCLOVIR HYDROCHLORIDE
  6. ZYRTEC [Concomitant]
     Active Substance: CETIRIZINE HYDROCHLORIDE
  7. IRON [Concomitant]
     Active Substance: IRON
  8. Vitamin D [Concomitant]
  9. Hair/Skin/Nails Supplement [Concomitant]
  10. VITAMIN B [Concomitant]
  11. DIETARY SUPPLEMENT\HERBALS [Concomitant]
     Active Substance: DIETARY SUPPLEMENT\HERBALS
  12. Ristela [Concomitant]
  13. CALCIUM [Concomitant]
     Active Substance: CALCIUM
  14. GLUCOSAMINE [Concomitant]
     Active Substance: GLUCOSAMINE
  15. FLAX SEED OIL [Concomitant]
  16. LYSINE [Concomitant]
     Active Substance: LYSINE

REACTIONS (1)
  - COVID-19 [None]

NARRATIVE: CASE EVENT DATE: 20220615
